FAERS Safety Report 6646261-X (Version None)
Quarter: 2010Q1

REPORT INFORMATION
  Report Type: 
  Country: None (occurrence: None)
  Receive Date: 20100323
  Receipt Date: 20100312
  Transmission Date: 20100710
  Serious: Yes (Other)
  Sender: FDA-Public Use
  Company Number: US-JNJFOC-20091101433

PATIENT
  Sex: Female
  Weight: 82.56 kg

DRUGS (18)
  1. REMICADE [Suspect]
     Indication: CROHN'S DISEASE
     Dosage: DOSE OF ^500 SOMETHING^
     Route: 042
  2. REMICADE [Suspect]
     Route: 042
  3. REMICADE [Suspect]
     Indication: RHEUMATOID ARTHRITIS
     Route: 042
  4. REMICADE [Suspect]
     Dosage: DOSE OF ^500 SOMETHING^
     Route: 042
  5. BIRTH CONTROL PILL [Suspect]
     Indication: CONTRACEPTION
  6. UNSPECIFIED BIRTH CONTROL [Suspect]
     Indication: CONTRACEPTION
     Route: 061
  7. PREDNISONE [Concomitant]
     Indication: CROHN'S DISEASE
  8. PENTASA [Concomitant]
     Indication: CROHN'S DISEASE
  9. METOCLOPRAM [Concomitant]
     Indication: DIARRHOEA
     Dosage: DOSES OF BOTH 10 MG BID AND 2.5 MG BID
  10. METOCLOPRAM [Concomitant]
     Indication: NAUSEA
     Dosage: DOSES OF BOTH 10 MG BID AND 2.5 MG BID
  11. PROMETHAZINE [Concomitant]
     Indication: NAUSEA
  12. AZATHIOPRINE [Concomitant]
     Indication: CROHN'S DISEASE
  13. FOLIC ACID [Concomitant]
     Indication: CROHN'S DISEASE
  14. IRON [Concomitant]
     Indication: IRON DEFICIENCY
  15. METRONIDAZOLE [Concomitant]
     Indication: CROHN'S DISEASE
  16. PREVACID [Concomitant]
     Indication: GASTROOESOPHAGEAL REFLUX DISEASE
  17. PREVACID [Concomitant]
     Indication: CROHN'S DISEASE
  18. CYANOCOBALAMIN [Concomitant]
     Dosage: DOSAGE OF 1000 ^MC^

REACTIONS (9)
  - DIARRHOEA [None]
  - DRUG EXPOSURE DURING PREGNANCY [None]
  - DRUG INEFFECTIVE [None]
  - KNEE OPERATION [None]
  - MUSCLE SPASMS [None]
  - NAUSEA [None]
  - PREMATURE LABOUR [None]
  - WEIGHT INCREASED [None]
  - WHITE BLOOD CELL COUNT INCREASED [None]
